FAERS Safety Report 5919876-1 (Version None)
Quarter: 2008Q4

REPORT INFORMATION
  Report Type: 
  Country: None (occurrence: None)
  Receive Date: 20081015
  Receipt Date: 20081008
  Transmission Date: 20090506
  Serious: Yes (Hospitalization)
  Sender: FDA-Public Use
  Company Number: FR-ABBOTT-08P-056-0469867-00

PATIENT
  Sex: Female

DRUGS (8)
  1. DEPAKENE [Suspect]
     Indication: ACUTE MYELOID LEUKAEMIA
     Route: 048
     Dates: start: 20080206, end: 20080209
  2. DARBEPOETIN ALFA [Suspect]
     Indication: ACUTE MYELOID LEUKAEMIA
     Route: 065
     Dates: start: 20071123, end: 20071220
  3. DARBEPOETIN ALFA [Suspect]
     Route: 065
     Dates: start: 20071221, end: 20080601
  4. AZACITIDINE [Suspect]
     Indication: ACUTE MYELOID LEUKAEMIA
     Route: 058
     Dates: start: 20080206, end: 20080212
  5. TRETINOIN [Suspect]
     Indication: ACUTE MYELOID LEUKAEMIA
     Route: 048
     Dates: start: 20080213, end: 20080303
  6. ANASTROZOLE [Suspect]
     Indication: BREAST CANCER
     Route: 048
     Dates: start: 20040101
  7. LISINOPRIL [Concomitant]
     Indication: HYPERTENSION
     Route: 048
  8. LOPRESORETIC [Concomitant]
     Indication: HYPERTENSION
     Route: 048

REACTIONS (3)
  - DYSPNOEA [None]
  - PHLEBITIS [None]
  - PULMONARY EMBOLISM [None]
